FAERS Safety Report 9633384 (Version 1)
Quarter: 2013Q4

REPORT INFORMATION
  Report Type: Spontaneous
  Country: US (occurrence: US)
  Receive Date: 20131021
  Receipt Date: 20131021
  Transmission Date: 20140711
  Serious: Yes (Hospitalization)
  Sender: FDA-Public Use
  Company Number: US-BRISTOL-MYERS SQUIBB COMPANY-19095660

PATIENT
  Sex: Female

DRUGS (1)
  1. YERVOY [Suspect]

REACTIONS (3)
  - Hepatic enzyme increased [Recovering/Resolving]
  - Blood bilirubin increased [Unknown]
  - Abdominal pain [Unknown]
